FAERS Safety Report 21726972 (Version 1)
Quarter: 2022Q4

REPORT INFORMATION
  Report Type: Spontaneous
  Country: CN (occurrence: CN)
  Receive Date: 20221214
  Receipt Date: 20221214
  Transmission Date: 20230113
  Serious: Yes (Death, Other)
  Sender: FDA-Public Use
  Company Number: CN-GUERBET / FUNDTRIP PHARMACEUTICALS-CN-20220256

PATIENT
  Age: 44 Year
  Sex: Male

DRUGS (12)
  1. LIPIODOL [Suspect]
     Active Substance: ETHIODIZED OIL
     Indication: Transcatheter arterial chemoembolisation
     Route: 013
     Dates: start: 20180508, end: 20180508
  2. LIPIODOL [Suspect]
     Active Substance: ETHIODIZED OIL
     Route: 013
  3. LIPIODOL [Suspect]
     Active Substance: ETHIODIZED OIL
     Route: 013
  4. LIPIODOL [Suspect]
     Active Substance: ETHIODIZED OIL
     Route: 013
  5. LIPIODOL [Suspect]
     Active Substance: ETHIODIZED OIL
     Route: 013
  6. GELFOAM SPONGE [Suspect]
     Active Substance: GELATIN\THROMBIN HUMAN
     Indication: Transcatheter arterial chemoembolisation
     Dosage: 350 ?M
     Route: 013
     Dates: start: 20180508, end: 20180508
  7. GELFOAM SPONGE [Suspect]
     Active Substance: GELATIN\THROMBIN HUMAN
     Dosage: 350 ?M
     Route: 013
     Dates: start: 20181130, end: 20181130
  8. TETRAHYDROPALMATINE [Suspect]
     Active Substance: TETRAHYDROPALMATINE
     Indication: Transcatheter arterial chemoembolisation
     Route: 013
     Dates: start: 20180508, end: 20180508
  9. TETRAHYDROPALMATINE [Suspect]
     Active Substance: TETRAHYDROPALMATINE
     Route: 013
  10. TETRAHYDROPALMATINE [Suspect]
     Active Substance: TETRAHYDROPALMATINE
     Route: 013
  11. TETRAHYDROPALMATINE [Suspect]
     Active Substance: TETRAHYDROPALMATINE
     Route: 013
  12. TETRAHYDROPALMATINE [Suspect]
     Active Substance: TETRAHYDROPALMATINE
     Route: 013
     Dates: start: 20181130, end: 20181130

REACTIONS (5)
  - Portal venous gas [Fatal]
  - Liver abscess [Fatal]
  - Pneumonia [Fatal]
  - Pneumorrhachis [Fatal]
  - Overdose [Unknown]
